FAERS Safety Report 24111486 (Version 2)
Quarter: 2024Q3

REPORT INFORMATION
  Report Type: Spontaneous
  Country: US (occurrence: US)
  Receive Date: 20240718
  Receipt Date: 20240909
  Transmission Date: 20241017
  Serious: No
  Sender: THERATECHNOLOGIES
  Company Number: US-THERATECHNOLOGIES INC.-2024-THE-TES-000235

PATIENT

DRUGS (2)
  1. EGRIFTA SV [Suspect]
     Active Substance: TESAMORELIN ACETATE
     Indication: Lipodystrophy acquired
     Dosage: 1.4 MG, QD, 0.35 ML RECONSTITUTED SOLUTION
     Route: 058
     Dates: start: 20240618, end: 20240719
  2. EGRIFTA SV [Suspect]
     Active Substance: TESAMORELIN ACETATE
     Dosage: 1.4 MG, QD
     Route: 058
     Dates: start: 20240801

REACTIONS (7)
  - Weight decreased [Unknown]
  - Hypertension [Recovering/Resolving]
  - Muscle spasms [Recovering/Resolving]
  - Decreased appetite [Not Recovered/Not Resolved]
  - Injection site paraesthesia [Recovering/Resolving]
  - Insulin-like growth factor increased [Not Recovered/Not Resolved]
  - Glycosylated haemoglobin increased [Not Recovered/Not Resolved]

NARRATIVE: CASE EVENT DATE: 20240101
